FAERS Safety Report 24875583 (Version 1)
Quarter: 2025Q1

REPORT INFORMATION
  Report Type: Spontaneous
  Country: FR (occurrence: FR)
  Receive Date: 20250122
  Receipt Date: 20250122
  Transmission Date: 20250408
  Serious: Yes (Hospitalization)
  Sender: PFIZER
  Company Number: None

PATIENT
  Age: 85 Year
  Sex: Male

DRUGS (5)
  1. SPIRONOLACTONE [Interacting]
     Active Substance: SPIRONOLACTONE
     Indication: Hypertension
     Dosage: 1.25 MG, 1X/DAY LONG-TERM TREATMENT
     Route: 048
  2. BISOPROLOL FUMARATE [Interacting]
     Active Substance: BISOPROLOL FUMARATE
     Indication: Hypertension
     Dosage: FREQ:12 H; LONG-TERM TREATMENT
     Route: 048
     Dates: end: 20240531
  3. CANDESARTAN CILEXETIL [Interacting]
     Active Substance: CANDESARTAN CILEXETIL
     Indication: Hypertension
     Dosage: 1 DF, 1X/DAY LONG-TERM TREATMENT
     Route: 048
     Dates: end: 20240531
  4. FUROSEMIDE [Interacting]
     Active Substance: FUROSEMIDE
     Indication: Hypertension
     Dosage: 125 MG, 1X/DAY LONG-TERM TREATMENT
     Route: 048
  5. DAPAGLIFLOZIN [Interacting]
     Active Substance: DAPAGLIFLOZIN
     Indication: Hypertension
     Dosage: 10 MG, 1X/DAY LONG-TERM TREATMENT
     Route: 048

REACTIONS (2)
  - Hypotension [Recovering/Resolving]
  - Drug interaction [Recovering/Resolving]

NARRATIVE: CASE EVENT DATE: 20240531
